FAERS Safety Report 25540007 (Version 3)
Quarter: 2025Q3

REPORT INFORMATION
  Report Type: Report from Study
  Country: US (occurrence: US)
  Receive Date: 20250710
  Receipt Date: 20250825
  Transmission Date: 20251021
  Serious: No
  Sender: SUNOVION
  Company Number: US-SUMITOMO PHARMA SWITZERLAND GMBH-2025SPA007772

PATIENT
  Age: 71 Year
  Sex: Male

DRUGS (9)
  1. ORGOVYX [Suspect]
     Active Substance: RELUGOLIX
     Indication: Prostate cancer
     Route: 048
     Dates: start: 20250527, end: 20250527
  2. ORGOVYX [Suspect]
     Active Substance: RELUGOLIX
     Route: 048
  3. CLARITIN [Concomitant]
     Active Substance: LORATADINE
     Route: 048
  4. METHYLPREDNISOLONE [Concomitant]
     Active Substance: METHYLPREDNISOLONE
     Route: 048
  5. Ther Biotic Complete [Concomitant]
  6. SILDENAFIL CITRATE [Concomitant]
     Active Substance: SILDENAFIL CITRATE
     Route: 048
  7. ZYRTEC [Concomitant]
     Active Substance: CETIRIZINE HYDROCHLORIDE
     Indication: Hypersensitivity
     Route: 048
  8. VITAMINS [Concomitant]
     Active Substance: VITAMINS
  9. MELOXICAM [Concomitant]
     Active Substance: MELOXICAM

REACTIONS (6)
  - Glycosylated haemoglobin increased [Unknown]
  - Headache [Recovered/Resolved]
  - Hot flush [Unknown]
  - Back pain [Unknown]
  - Fatigue [Unknown]
  - Blood glucose increased [Unknown]

NARRATIVE: CASE EVENT DATE: 20250601
